FAERS Safety Report 10720729 (Version 1)
Quarter: 2015Q1

REPORT INFORMATION
  Report Type: Spontaneous
  Country: US (occurrence: US)
  Receive Date: 20150119
  Receipt Date: 20150119
  Transmission Date: 20150721
  Serious: Yes (Other)
  Sender: FDA-Public Use
  Company Number: US-RB-072269-15

PATIENT
  Age: 48 Year
  Sex: Female

DRUGS (1)
  1. MUCINEX DM MAXIMUM STRENGTH [Suspect]
     Active Substance: DEXTROMETHORPHAN HYDROBROMIDE\GUAIFENESIN
     Indication: COUGH
     Dosage: TOOK 1 TABLET ON 08-JAN-2015 (TOTAL)
     Route: 065
     Dates: start: 20150108

REACTIONS (5)
  - Palpitations [Recovered/Resolved]
  - Feeling abnormal [Recovered/Resolved]
  - Insomnia [Recovered/Resolved]
  - Hallucination [Recovered/Resolved]
  - Apparent death [Recovered/Resolved]

NARRATIVE: CASE EVENT DATE: 201501
